FAERS Safety Report 13246316 (Version 2)
Quarter: 2017Q1

REPORT INFORMATION
  Report Type: Spontaneous
  Country: US (occurrence: US)
  Receive Date: 20170217
  Receipt Date: 20170316
  Transmission Date: 20170428
  Serious: Yes (Hospitalization, Other)
  Sender: FDA-Public Use
  Company Number: US-SAOL THERAPEUTICS-2017SAO00311

PATIENT
  Age: 58 Year
  Sex: Female

DRUGS (4)
  1. LIORESAL [Suspect]
     Active Substance: BACLOFEN
     Indication: CEREBROVASCULAR ACCIDENT
  2. ^A LOT^ OF UNSPECIFIED MEDICATIONS [Concomitant]
     Dosage: UKN
  3. BOTOX [Concomitant]
     Active Substance: ONABOTULINUMTOXINA
  4. LIORESAL [Suspect]
     Active Substance: BACLOFEN
     Indication: MUSCLE SPASTICITY
     Dosage: 270 ?G, \DAY
     Route: 037
     Dates: start: 20110510

REACTIONS (2)
  - Complication associated with device [Not Recovered/Not Resolved]
  - Volvulus [Unknown]

NARRATIVE: CASE EVENT DATE: 20170101
